FAERS Safety Report 24765722 (Version 2)
Quarter: 2024Q4

REPORT INFORMATION
  Report Type: Spontaneous
  Country: ES (occurrence: ES)
  Receive Date: 20241223
  Receipt Date: 20241227
  Transmission Date: 20250115
  Serious: Yes (Other)
  Sender: BAYER HEALTHCARE PHARMACEUTICALS INC.
  Company Number: ES-BAYER-2024A177826

PATIENT
  Age: 41 Year
  Sex: Male

DRUGS (3)
  1. REGORAFENIB [Suspect]
     Active Substance: REGORAFENIB
     Indication: Glioblastoma
     Dosage: 160 MG, QD
  2. REGORAFENIB [Suspect]
     Active Substance: REGORAFENIB
     Indication: Glioblastoma
     Dosage: 120 MG, QD
     Dates: start: 202305
  3. BEVACIZUMAB [Concomitant]
     Active Substance: BEVACIZUMAB

REACTIONS (1)
  - Palmar-plantar erythrodysaesthesia syndrome [None]
